FAERS Safety Report 9178628 (Version 1)
Quarter: 2013Q1

REPORT INFORMATION
  Report Type: Spontaneous
  Country: US (occurrence: US)
  Receive Date: 20130321
  Receipt Date: 20130321
  Transmission Date: 20140127
  Serious: Yes (Death, Other)
  Sender: FDA-Public Use
  Company Number: US-009507513-2009SP024406

PATIENT
  Sex: Female
  Weight: 83.92 kg

DRUGS (1)
  1. NUVARING [Suspect]
     Indication: CONTRACEPTION
     Route: 067
     Dates: start: 20060126, end: 20070916

REACTIONS (6)
  - Arrhythmia [Fatal]
  - Cardiac failure [Not Recovered/Not Resolved]
  - Respiratory arrest [Not Recovered/Not Resolved]
  - Acute pulmonary oedema [Unknown]
  - Pulmonary congestion [Unknown]
  - Hepatitis [Unknown]
